FAERS Safety Report 5513994-8 (Version None)
Quarter: 2007Q4

REPORT INFORMATION
  Report Type: 
  Country: None (occurrence: None)
  Receive Date: 20071107
  Receipt Date: 20070131
  Transmission Date: 20080405
  Serious: Yes (Other)
  Sender: FDA-Public Use
  Company Number: 2007RL000034

PATIENT
  Age: 82 Year
  Sex: Female

DRUGS (3)
  1. RYTHMOL SR [Suspect]
     Indication: ATRIAL FIBRILLATION
     Dosage: 225 MG;BID;PO
     Route: 048
     Dates: start: 20070112, end: 20070130
  2. VERAPAMIL [Suspect]
     Indication: HYPERTENSION
     Dates: end: 20070130
  3. COUMADIN [Concomitant]

REACTIONS (5)
  - DIZZINESS [None]
  - FATIGUE [None]
  - HEART RATE DECREASED [None]
  - HYPOTENSION [None]
  - MALAISE [None]
